FAERS Safety Report 19933289 (Version 2)
Quarter: 2021Q4

REPORT INFORMATION
  Report Type: Spontaneous
  Country: US (occurrence: US)
  Receive Date: 20211008
  Receipt Date: 20211013
  Transmission Date: 20220304
  Serious: No
  Sender: FDA-Public Use
  Company Number: NVSC2021US230798

PATIENT
  Sex: Female

DRUGS (1)
  1. XIIDRA [Suspect]
     Active Substance: LIFITEGRAST
     Indication: Dry eye
     Dosage: 1 DROP BOTH EYE
     Route: 065

REACTIONS (4)
  - Inappropriate schedule of product administration [Unknown]
  - Eye irritation [Unknown]
  - Vision blurred [Unknown]
  - Product after taste [Unknown]
